FAERS Safety Report 8556113-6 (Version None)
Quarter: 2012Q3

REPORT INFORMATION
  Report Type: 
  Country: None (occurrence: None)
  Receive Date: 20120801
  Receipt Date: 20120724
  Transmission Date: 20120928
  Serious: Yes (Life-Threatening, Hospitalization)
  Sender: FDA-Public Use
  Company Number: DE-JNJFOC-20120210656

PATIENT
  Sex: Male
  Weight: 95 kg

DRUGS (3)
  1. RAMIPRIL [Concomitant]
     Route: 065
  2. ISONIAZID [Concomitant]
     Route: 065
     Dates: start: 20110101
  3. STELARA [Suspect]
     Indication: PSORIASIS
     Route: 058
     Dates: start: 20110407

REACTIONS (1)
  - MYOCARDIAL INFARCTION [None]
